FAERS Safety Report 8951434 (Version 1)
Quarter: 2012Q4

REPORT INFORMATION
  Report Type: 
  Country: US (occurrence: US)
  Receive Date: 20121207
  Receipt Date: 20121207
  Transmission Date: 20130627
  Serious: No
  Sender: FDA-Public Use
  Company Number: US-ROXANE LABORATORIES, INC.-2012-RO-02480RO

PATIENT
  Age: 52 Year
  Sex: Male

DRUGS (6)
  1. MORPHINE [Suspect]
     Indication: BACK PAIN
     Dosage: 45 mg
     Route: 048
     Dates: start: 20121120
  2. LIPITOR [Concomitant]
     Dosage: 40 mg
  3. LOSARTAN [Concomitant]
     Dosage: 50 mg
  4. FLOMAX [Concomitant]
     Dosage: 0.8 mg
  5. TRAZODONE [Concomitant]
     Dosage: 100 mg
  6. HUMALOG [Concomitant]
     Indication: DIABETES MELLITUS

REACTIONS (1)
  - Hypoglycaemia [Not Recovered/Not Resolved]
